FAERS Safety Report 7253867-6 (Version None)
Quarter: 2011Q1

REPORT INFORMATION
  Report Type: 
  Country: None (occurrence: None)
  Receive Date: 20110129
  Receipt Date: 20100422
  Transmission Date: 20110831
  Serious: No
  Sender: FDA-Public Use
  Company Number: US-ABBOTT-10P-163-0640891-00

PATIENT
  Sex: Female
  Weight: 117.13 kg

DRUGS (5)
  1. HUMIRA [Suspect]
     Indication: COLITIS ULCERATIVE
     Dates: start: 20100401, end: 20100401
  2. HUMIRA [Suspect]
     Dates: start: 20100501
  3. WELLBUTRIN [Concomitant]
     Indication: PRODUCT USED FOR UNKNOWN INDICATION
  4. ASACOL [Concomitant]
     Indication: PRODUCT USED FOR UNKNOWN INDICATION
  5. HUMIRA [Suspect]
     Indication: CROHN'S DISEASE
     Dosage: ONCE FIRST LOADING DOSE
     Route: 058
     Dates: start: 20100405, end: 20100405

REACTIONS (2)
  - INJECTION SITE URTICARIA [None]
  - INJECTION SITE ERYTHEMA [None]
